FAERS Safety Report 4496488-0 (Version None)
Quarter: 2004Q4

REPORT INFORMATION
  Report Type: 
  Country: None (occurrence: None)
  Receive Date: 20041102
  Receipt Date: 20041018
  Transmission Date: 20050328
  Serious: Yes (Death, Hospitalization)
  Sender: FDA-Public Use
  Company Number: 239318

PATIENT
  Age: 63 Year
  Sex: Male
  Weight: 63 kg

DRUGS (10)
  1. NIASTASE (EPTACOG ALFA (ACTIVATED)) [Suspect]
     Indication: AORTIC ANEURYSM RUPTURE
     Dosage: 1.2 MGAND 4.8 MG, INTRAVENOUS
     Route: 042
     Dates: start: 20040726, end: 20040727
  2. FENTANYL [Concomitant]
  3. PROPOFOL [Concomitant]
  4. NITRO (GLYCERYL TRINITRATE) [Concomitant]
  5. PENTASPAN (HETASTARCH) [Concomitant]
  6. ATIVAN [Concomitant]
  7. PANTOLOC   BYK  GULDEN  (PANTOPRAZOLE SODIUM) [Concomitant]
  8. PHENYLEPHRINE (PHENYLEPHRINE) [Concomitant]
  9. LEVOPHD (NOREPINEPHRINE BITARTRATE) [Concomitant]
  10. CALCIUM CHLORATE (CALCIUM CHLORATE) [Concomitant]

REACTIONS (10)
  - ACUTE MYOCARDIAL INFARCTION [None]
  - ANGINA UNSTABLE [None]
  - BRADYCARDIA [None]
  - CARDIAC ARREST [None]
  - ELECTROMECHANICAL DISSOCIATION [None]
  - HYPOTENSION [None]
  - POST PROCEDURAL COMPLICATION [None]
  - POST PROCEDURAL HAEMORRHAGE [None]
  - RESPIRATORY DISORDER [None]
  - SEPSIS [None]
